FAERS Safety Report 19972546 (Version 1)
Quarter: 2021Q4

REPORT INFORMATION
  Report Type: Spontaneous
  Country: US (occurrence: US)
  Receive Date: 20211016
  Receipt Date: 20211016
  Transmission Date: 20220303
  Serious: Yes (Hospitalization)
  Sender: FDA-Public Use
  Company Number: None

PATIENT
  Sex: Female
  Weight: 69.85 kg

DRUGS (8)
  1. CYCLOPHOSPHAMIDE [Suspect]
     Active Substance: CYCLOPHOSPHAMIDE
  2. DOXORUBICIN HYDROCHLORIDE [Suspect]
     Active Substance: DOXORUBICIN HYDROCHLORIDE
     Dates: end: 20210910
  3. VINCRISTINE SULFATE [Suspect]
     Active Substance: VINCRISTINE SULFATE
     Dates: end: 20210917
  4. SPRYCEL [Suspect]
     Active Substance: DASATINIB
     Dates: end: 20210920
  5. MESNA [Suspect]
     Active Substance: MESNA
     Dates: end: 20210910
  6. CYTARABINE [Suspect]
     Active Substance: CYTARABINE
     Dates: end: 20210908
  7. METHOTREXATE [Suspect]
     Active Substance: METHOTREXATE
     Dates: end: 20210914
  8. PREDNISONE [Suspect]
     Active Substance: PREDNISONE
     Dates: end: 20210831

REACTIONS (20)
  - Diarrhoea [None]
  - Incontinence [None]
  - Hypophagia [None]
  - Muscle spasms [None]
  - Dizziness [None]
  - Pancytopenia [None]
  - Acute kidney injury [None]
  - Transaminases increased [None]
  - Electrolyte imbalance [None]
  - Hypocalcaemia [None]
  - Hypokalaemia [None]
  - Gram stain positive [None]
  - Bacterial infection [None]
  - Pneumonia klebsiella [None]
  - Beta haemolytic streptococcal infection [None]
  - Confusional state [None]
  - Asterixis [None]
  - Sepsis [None]
  - Nervous system disorder [None]
  - Acute lymphocytic leukaemia [None]

NARRATIVE: CASE EVENT DATE: 20210922
